FAERS Safety Report 4421129-8 (Version None)
Quarter: 2004Q3

REPORT INFORMATION
  Report Type: 
  Country: None (occurrence: None)
  Receive Date: 20040707
  Receipt Date: 20040318
  Transmission Date: 20050211
  Serious: Yes (Other)
  Sender: FDA-Public Use
  Company Number: 345032

PATIENT
  Age: 41 Year
  Sex: Male
  Weight: 90.7 kg

DRUGS (5)
  1. FUZEON [Suspect]
     Indication: HIV INFECTION
     Dosage: 90 MG 2 PER DAY, SUBCUTANEOUS
     Route: 058
     Dates: start: 20030801
  2. REYATAZ [Concomitant]
  3. VIREAD [Concomitant]
  4. NORVIR [Concomitant]
  5. BIAXIN [Concomitant]

REACTIONS (14)
  - CELLULITIS [None]
  - ERYTHEMA [None]
  - GINGIVAL INFECTION [None]
  - ILL-DEFINED DISORDER [None]
  - INJECTION SITE INFECTION [None]
  - INJECTION SITE PRURITUS [None]
  - INJECTION SITE REACTION [None]
  - INJECTION SITE VESICLES [None]
  - LOWER RESPIRATORY TRACT INFECTION [None]
  - PAIN [None]
  - PRURITUS [None]
  - SCAR [None]
  - SKIN LESION [None]
  - TEETH BRITTLE [None]
